FAERS Safety Report 8773923 (Version 1)
Quarter: 2012Q4

REPORT INFORMATION
  Report Type: 
  Country: US (occurrence: US)
  Receive Date: 20120907
  Receipt Date: 20120907
  Transmission Date: 20130627
  Serious: Yes (Hospitalization)
  Sender: FDA-Public Use
  Company Number: US-ACTELION-A-US2012-70732

PATIENT
  Age: 37 Year
  Sex: Female

DRUGS (3)
  1. VELETRI [Suspect]
     Indication: PULMONARY ARTERIAL HYPERTENSION
     Dosage: 39 ng/kg, per min
     Route: 042
     Dates: start: 20110115
  2. PLAVIX [Concomitant]
  3. COUMADIN [Concomitant]

REACTIONS (1)
  - Hypothalamo-pituitary disorder [Unknown]
